FAERS Safety Report 9611018 (Version 1)
Quarter: 2013Q4

REPORT INFORMATION
  Report Type: Report from Study
  Country: NL (occurrence: NL)
  Receive Date: 20131009
  Receipt Date: 20131009
  Transmission Date: 20140711
  Serious: Yes (Other)
  Sender: FDA-Public Use
  Company Number: NL-GLAXOSMITHKLINE-B0925329B

PATIENT
  Age: 52 Year
  Sex: Male
  Weight: 64 kg

DRUGS (3)
  1. DABRAFENIB [Suspect]
     Indication: METASTATIC MALIGNANT MELANOMA
     Dosage: 150MG TWICE PER DAY
     Route: 048
     Dates: start: 20130904
  2. TRAMETINIB [Suspect]
     Indication: METASTATIC MALIGNANT MELANOMA
     Dosage: 2MG PER DAY
     Route: 048
     Dates: start: 20130904
  3. PARACETAMOL [Suspect]
     Indication: HEADACHE
     Route: 048
     Dates: start: 20130920, end: 20130923

REACTIONS (2)
  - Alanine aminotransferase [Recovered/Resolved]
  - Aspartate aminotransferase [Recovered/Resolved]
